FAERS Safety Report 24279736 (Version 1)
Quarter: 2024Q3

REPORT INFORMATION
  Report Type: Spontaneous
  Country: CN (occurrence: CN)
  Receive Date: 20240904
  Receipt Date: 20240904
  Transmission Date: 20241017
  Serious: Yes (Life-Threatening, Other)
  Sender: NOVO NORDISK
  Company Number: CN-NOVOPROD-1271704

PATIENT
  Age: 69 Year
  Sex: Female

DRUGS (1)
  1. NOVORAPID [Suspect]
     Active Substance: INSULIN ASPART
     Indication: Type 2 diabetes mellitus
     Dosage: 2 IU, TID (BEFORE THREE MEALS)

REACTIONS (5)
  - Diabetic complication [Unknown]
  - Blood glucose increased [Unknown]
  - Hyperglycaemia [Recovered/Resolved]
  - Blood glucose fluctuation [Unknown]
  - Drug ineffective [Unknown]

NARRATIVE: CASE EVENT DATE: 20240814
